FAERS Safety Report 6906994-4 (Version None)
Quarter: 2010Q3

REPORT INFORMATION
  Report Type: 
  Country: None (occurrence: None)
  Receive Date: 20100804
  Receipt Date: 20070502
  Transmission Date: 20110219
  Serious: No
  Sender: FDA-Public Use
  Company Number: US-PFIZER INC-2007039191

PATIENT

DRUGS (1)
  1. ZARONTIN [Suspect]

REACTIONS (1)
  - OROPHARYNGEAL PAIN [None]
